FAERS Safety Report 7646737-2 (Version None)
Quarter: 2011Q3

REPORT INFORMATION
  Report Type: 
  Country: None (occurrence: None)
  Receive Date: 20110801
  Receipt Date: 20110725
  Transmission Date: 20111222
  Serious: Yes (Hospitalization)
  Sender: FDA-Public Use
  Company Number: FR-ASTELLAS-2011EU001577

PATIENT
  Sex: Female

DRUGS (1)
  1. MICAFUNGIN INJECTION [Suspect]
     Indication: ANTIFUNGAL PROPHYLAXIS
     Dosage: UNK
     Route: 042
     Dates: start: 20110316, end: 20110324

REACTIONS (1)
  - LIVER TRANSPLANT REJECTION [None]
